FAERS Safety Report 5833601-4 (Version None)
Quarter: 2008Q3

REPORT INFORMATION
  Report Type: 
  Country: None (occurrence: None)
  Receive Date: 20080805
  Receipt Date: 20080724
  Transmission Date: 20090109
  Serious: Yes (Hospitalization)
  Sender: FDA-Public Use
  Company Number: TW-ROCHE-576609

PATIENT
  Age: 53 Year
  Sex: Female

DRUGS (2)
  1. XELODA [Suspect]
     Route: 048
     Dates: start: 20080707, end: 20080715
  2. TAXOTERE [Suspect]
     Route: 065
     Dates: start: 20080707, end: 20080715

REACTIONS (7)
  - DIZZINESS [None]
  - DYSURIA [None]
  - HEADACHE [None]
  - PYREXIA [None]
  - RASH [None]
  - VOMITING [None]
  - WHITE BLOOD CELL COUNT DECREASED [None]
